FAERS Safety Report 4555361-X (Version None)
Quarter: 2005Q1

REPORT INFORMATION
  Report Type: 
  Country: None (occurrence: None)
  Receive Date: 20050118
  Receipt Date: 20050118
  Transmission Date: 20050727
  Serious: Yes (Hospitalization)
  Sender: FDA-Public Use
  Company Number: None

PATIENT
  Age: 72 Year
  Sex: Male
  Weight: 87 kg

DRUGS (3)
  1. AVASTIN [Suspect]
     Indication: HEPATIC NEOPLASM MALIGNANT
     Dosage: 865 MG Q 2 WK IV
     Route: 042
     Dates: start: 20040621
  2. COMPAZINE [Concomitant]
  3. XANAX [Concomitant]

REACTIONS (3)
  - BLEEDING VARICOSE VEIN [None]
  - NAUSEA [None]
  - UPPER GASTROINTESTINAL HAEMORRHAGE [None]
